FAERS Safety Report 4750362-0 (Version None)
Quarter: 2005Q3

REPORT INFORMATION
  Report Type: 
  Country: None (occurrence: None)
  Receive Date: 20050818
  Receipt Date: 20050809
  Transmission Date: 20060218
  Serious: Yes (Hospitalization)
  Sender: FDA-Public Use
  Company Number: 2005-07-0121

PATIENT
  Age: 36 Year
  Sex: Female
  Weight: 105 kg

DRUGS (3)
  1. ELOSALIC (MOMETASONE FUROATE/SALICYLIC ACID) OINTMENT ^LIKE ELOCON OIN [Suspect]
     Indication: PSORIASIS
     Dosage: BID TO-DERM
     Dates: start: 20050531, end: 20050614
  2. DIPROSALIC (BETAMETHASONE DIPROPIONATE/SALICYLIC ACI OINTMENT [Suspect]
     Dosage: 2 DOSES QD TOP-DER
     Dates: start: 20050412, end: 20050531
  3. BLOPRESS (CANDESARTAN CILEXETIL) TABLETS [Concomitant]

REACTIONS (6)
  - APPLICATION SITE IRRITATION [None]
  - COLITIS ULCERATIVE [None]
  - CONDITION AGGRAVATED [None]
  - METABOLIC SYNDROME [None]
  - PSORIASIS [None]
  - SKIN BURNING SENSATION [None]
